FAERS Safety Report 10279371 (Version 2)
Quarter: 2014Q3

REPORT INFORMATION
  Report Type: Spontaneous
  Country: US (occurrence: US)
  Receive Date: 20140707
  Receipt Date: 20140812
  Transmission Date: 20150326
  Serious: Yes (Other)
  Sender: FDA-Public Use
  Company Number: PHEH2014US013340

PATIENT
  Age: 58 Year
  Sex: Female
  Weight: 82.27 kg

DRUGS (24)
  1. POTASSIUM CHLORIDE. [Concomitant]
     Active Substance: POTASSIUM CHLORIDE
     Dosage: 10 %
     Route: 048
  2. VITAMIN D3 [Concomitant]
     Active Substance: CHOLECALCIFEROL
     Dosage: 1000 U
  3. SOMA [Concomitant]
     Active Substance: CARISOPRODOL
     Dosage: 350 MG
  4. HYDROXYZINE HCL [Concomitant]
     Active Substance: HYDROXYZINE HYDROCHLORIDE
     Dosage: 50 MG
  5. MORPHINE [Concomitant]
     Active Substance: MORPHINE
     Dosage: 30 MG
  6. WARFARIN [Concomitant]
     Active Substance: WARFARIN
     Dosage: 1 MG
  7. CARVEDILOL. [Concomitant]
     Active Substance: CARVEDILOL
     Dosage: 12.5 MG
  8. VITAMIN B 6 [Concomitant]
     Dosage: 25 MG
  9. IBUPROFEN. [Concomitant]
     Active Substance: IBUPROFEN
     Dosage: 800 MG
  10. ABILIFY [Concomitant]
     Active Substance: ARIPIPRAZOLE
     Dosage: 10 MG
  11. BUMETANIDE. [Concomitant]
     Active Substance: BUMETANIDE
     Dosage: 1 MG
  12. FEMARA [Suspect]
     Active Substance: LETROZOLE
     Indication: BREAST CANCER
     Dosage: 2.5 MG, DAILY
     Route: 048
     Dates: start: 20140220, end: 20140305
  13. AROMASIN [Suspect]
     Active Substance: EXEMESTANE
     Dosage: 25 MG, QD
  14. CLINDAMYCIN [Concomitant]
     Active Substance: CLINDAMYCIN\CLINDAMYCIN PHOSPHATE
     Dosage: 1 MG
  15. HEPARIN [Concomitant]
     Active Substance: HEPARIN SODIUM
     Indication: RENAL DISORDER
     Dosage: UNK UKN, UNK
  16. FLUOXETINE [Concomitant]
     Active Substance: FLUOXETINE\FLUOXETINE HYDROCHLORIDE
     Dosage: 40 MG
  17. FOLIC ACID. [Concomitant]
     Active Substance: FOLIC ACID
     Dosage: 2.2 MG
  18. VITAMIN B12 [Concomitant]
     Active Substance: CYANOCOBALAMIN
     Dosage: 0.5 MG
  19. DIOVAN [Concomitant]
     Active Substance: VALSARTAN
     Dosage: 40 MG
  20. PERCOCET [Concomitant]
     Active Substance: ACETAMINOPHEN\OXYCODONE HYDROCHLORIDE
     Dosage: 5/325 MG
  21. COUMADINE [Concomitant]
     Active Substance: WARFARIN SODIUM
     Dosage: 6 MG
  22. OXYCODONE [Concomitant]
     Active Substance: OXYCODONE
     Dosage: 15 MG
  23. ARIMIDEX [Concomitant]
     Active Substance: ANASTROZOLE
     Dosage: UNK UKN, UNK
     Dates: start: 20120628
  24. DIFLUCAN [Concomitant]
     Active Substance: FLUCONAZOLE
     Dosage: UNK UKN, UNK

REACTIONS (21)
  - Feeling hot [Unknown]
  - Diarrhoea [Recovered/Resolved]
  - Joint injury [Recovered/Resolved]
  - Appetite disorder [Unknown]
  - Arthropathy [Unknown]
  - Retching [Unknown]
  - Oedema peripheral [Unknown]
  - Erythema [Unknown]
  - Arthralgia [Recovered/Resolved]
  - Fatigue [Unknown]
  - Renal failure chronic [Unknown]
  - Hypercoagulation [Unknown]
  - Myalgia [Unknown]
  - Pain [Not Recovered/Not Resolved]
  - Breast pain [Unknown]
  - Nausea [Unknown]
  - Bone pain [Recovered/Resolved]
  - Blood pressure increased [Unknown]
  - Muscle spasms [Unknown]
  - Induration [Unknown]
  - Tenderness [Unknown]

NARRATIVE: CASE EVENT DATE: 20140301
